FAERS Safety Report 10255754 (Version 1)
Quarter: 2014Q2

REPORT INFORMATION
  Report Type: Spontaneous
  Country: US (occurrence: None)
  Receive Date: 20140522
  Receipt Date: 20140522
  Transmission Date: 20141212
  Serious: No
  Sender: FDA-Public Use
  Company Number: 1000054000

PATIENT
  Age: 82 Year
  Sex: Male

DRUGS (7)
  1. TUDORZA PRESSAIR (ACLIDINIUM BROMIDE) (400 MICROGRAM, POWDER) [Suspect]
     Indication: ASTHMA
     Dosage: 800 UG (400 UG, 2 IN 1 D)
     Route: 055
     Dates: start: 201311
  2. MULTAQ (DRONEDARONE HYDROCHLORIDE) [Concomitant]
  3. METOPROLOL [Concomitant]
  4. FUROSEMIDE [Concomitant]
  5. LOSARTAN [Concomitant]
  6. FINASTERIDE [Concomitant]
  7. COUMADIN (WARFARIN) [Concomitant]

REACTIONS (4)
  - Asthma [None]
  - Dyspnoea [None]
  - Nasopharyngitis [None]
  - Off label use [None]
